FAERS Safety Report 16300383 (Version 1)
Quarter: 2019Q2

REPORT INFORMATION
  Report Type: Spontaneous
  Country: US (occurrence: US)
  Receive Date: 20190510
  Receipt Date: 20190510
  Transmission Date: 20190711
  Serious: No
  Sender: FDA-Public Use
  Company Number: US-ASTRAZENECA-2019SE57151

PATIENT
  Age: 476 Month
  Sex: Female
  Weight: 74.8 kg

DRUGS (1)
  1. BYDUREON BCISE [Suspect]
     Active Substance: EXENATIDE
     Indication: TYPE 2 DIABETES MELLITUS
     Route: 058
     Dates: start: 201901

REACTIONS (5)
  - Injection site erythema [Not Recovered/Not Resolved]
  - Circumstance or information capable of leading to medication error [Unknown]
  - Injection site haemorrhage [Recovered/Resolved]
  - Contusion [Not Recovered/Not Resolved]
  - Injection site extravasation [Unknown]

NARRATIVE: CASE EVENT DATE: 201901
